FAERS Safety Report 5577656-3 (Version None)
Quarter: 2007Q4

REPORT INFORMATION
  Report Type: 
  Country: None (occurrence: None)
  Receive Date: 20071231
  Receipt Date: 20071223
  Transmission Date: 20080405
  Serious: Yes (Other)
  Sender: FDA-Public Use
  Company Number: PHBS2007SE21500

PATIENT
  Age: 78 Year
  Sex: Male

DRUGS (1)
  1. EXELON [Suspect]
     Route: 048
     Dates: start: 20071222, end: 20071223

REACTIONS (3)
  - DISEASE PROGRESSION [None]
  - FATIGUE [None]
  - SOLILOQUY [None]
